FAERS Safety Report 7504245-3 (Version None)
Quarter: 2011Q2

REPORT INFORMATION
  Report Type: 
  Country: None (occurrence: None)
  Receive Date: 20110525
  Receipt Date: 20110510
  Transmission Date: 20111010
  Serious: No
  Sender: FDA-Public Use
  Company Number: US-BAYER-201041410NA

PATIENT
  Sex: Female

DRUGS (5)
  1. DARVOCET [Concomitant]
  2. DROSPIRENONE AND ETHINYL ESTRADIOL [Suspect]
     Indication: ACNE
  3. YAZ [Suspect]
     Indication: ACNE
     Dosage: UNK
  4. YASMIN [Suspect]
     Indication: ACNE
  5. MOTRIN [Concomitant]
     Route: 048

REACTIONS (1)
  - INJURY [None]
